FAERS Safety Report 5256263-6 (Version None)
Quarter: 2007Q1

REPORT INFORMATION
  Report Type: 
  Country: None (occurrence: None)
  Receive Date: 20070302
  Receipt Date: 20070302
  Transmission Date: 20070707
  Serious: Yes (Hospitalization)
  Sender: FDA-Public Use
  Company Number: None

PATIENT
  Sex: Female
  Weight: 75.4 kg

DRUGS (4)
  1. HEPARIN [Suspect]
     Indication: DIALYSIS
     Dosage: MULTIPLE VARIED IV
     Route: 042
     Dates: start: 20061228, end: 20070222
  2. HEPARIN [Suspect]
     Indication: PROPHYLAXIS
     Dosage: MULTIPLE VARIED IV
     Route: 042
     Dates: start: 20061228, end: 20070222
  3. HEPARIN [Suspect]
     Indication: PULMONARY EMBOLISM
     Dosage: MULTIPLE VARIED IV
     Route: 042
     Dates: start: 20061228, end: 20070222
  4. HEPARIN [Suspect]
     Indication: THROMBOSIS PROPHYLAXIS
     Dosage: MULTIPLE VARIED IV
     Route: 042
     Dates: start: 20061228, end: 20070222

REACTIONS (3)
  - CATHETER SITE HAEMORRHAGE [None]
  - DIALYSIS [None]
  - HEPARIN-INDUCED THROMBOCYTOPENIA [None]
